FAERS Safety Report 8518578-5 (Version None)
Quarter: 2012Q3

REPORT INFORMATION
  Report Type: 
  Country: None (occurrence: None)
  Receive Date: 20120718
  Receipt Date: 20120525
  Transmission Date: 20120928
  Serious: No
  Sender: FDA-Public Use
  Company Number: US-BRISTOL-MYERS SQUIBB COMPANY-16631574

PATIENT
  Age: 67 Year
  Sex: Female
  Weight: 127 kg

DRUGS (1)
  1. COUMADIN [Suspect]
     Dosage: 2 WEEKS AGO: REDUCED TO 3MG FROM 6MG,THIS WEEK:6MG ON TUESDAY,3MG ON WEDNESDAY AND THURSDAY.
     Dates: end: 20120524

REACTIONS (4)
  - URINARY INCONTINENCE [None]
  - INTERNATIONAL NORMALISED RATIO FLUCTUATION [None]
  - POLLAKIURIA [None]
  - BLOOD URINE PRESENT [None]
